FAERS Safety Report 8933745 (Version 1)
Quarter: 2012Q4

REPORT INFORMATION
  Report Type: 
  Country: US (occurrence: US)
  Receive Date: 20121129
  Receipt Date: 20121129
  Transmission Date: 20130627
  Serious: Yes (Hospitalization)
  Sender: FDA-Public Use
  Company Number: US-ASTRAZENECA-2012SE87765

PATIENT
  Age: 30233 Day
  Sex: Female
  Weight: 72.6 kg

DRUGS (6)
  1. SYMBICORT PMDI [Suspect]
     Indication: DYSPNOEA
     Dosage: 2 PUFFS 2 TIMES DAILY
     Route: 055
     Dates: start: 2010
  2. BENACAR [Concomitant]
     Indication: HYPERTENSION
     Dosage: 20, 12.5 ONE DAILY
     Dates: start: 2005
  3. DILTIAZEM [Concomitant]
     Indication: HYPERTENSION
     Dates: start: 2005
  4. SIMVASTATIN [Concomitant]
     Indication: BLOOD CHOLESTEROL
     Dates: start: 2010
  5. METFORMIN ER [Concomitant]
  6. BABY ASPIRIN [Concomitant]

REACTIONS (7)
  - Nasal discomfort [Not Recovered/Not Resolved]
  - Ocular discomfort [Not Recovered/Not Resolved]
  - Dizziness [Not Recovered/Not Resolved]
  - Eye disorder [Unknown]
  - Visual impairment [Unknown]
  - Anxiety [Unknown]
  - Insomnia [Unknown]
